FAERS Safety Report 19715414 (Version 1)
Quarter: 2021Q3

REPORT INFORMATION
  Report Type: Spontaneous
  Country: PL (occurrence: PL)
  Receive Date: 20210818
  Receipt Date: 20210818
  Transmission Date: 20211014
  Serious: Yes (Other)
  Sender: FDA-Public Use
  Company Number: PL-ELI_LILLY_AND_COMPANY-PL202108006206

PATIENT
  Age: 68 Year
  Sex: Female

DRUGS (5)
  1. ALPRAZOLAM. [Suspect]
     Active Substance: ALPRAZOLAM
     Indication: DEPRESSION
     Dosage: 2X0.5 MG, UNKNOWN
     Route: 065
  2. CELECOXIB. [Interacting]
     Active Substance: CELECOXIB
     Indication: ARTHROPATHY
     Dosage: 400 MG, DAILY
     Route: 065
  3. METOPROLOL [METOPROLOL SUCCINATE] [Interacting]
     Active Substance: METOPROLOL SUCCINATE
     Indication: DEPRESSION
     Dosage: 100 MG, DAILY
     Route: 065
  4. CIPROFLOXACIN. [Interacting]
     Active Substance: CIPROFLOXACIN
     Indication: ARTHROPATHY
     Dosage: 1000 MG, DAILY
     Route: 048
  5. DULOXETINE HYDROCHLORIDE. [Suspect]
     Active Substance: DULOXETINE HYDROCHLORIDE
     Indication: DEPRESSION
     Dosage: 60 MG, DAILY
     Route: 065

REACTIONS (5)
  - Eye pain [Recovered/Resolved]
  - Visual field defect [Recovered/Resolved]
  - Anhedonia [Unknown]
  - Hyperhidrosis [Recovered/Resolved]
  - Drug interaction [Unknown]
